FAERS Safety Report 10934941 (Version 1)
Quarter: 2015Q1

REPORT INFORMATION
  Report Type: Report from Study
  Country: GB (occurrence: GB)
  Receive Date: 20150320
  Receipt Date: 20150320
  Transmission Date: 20150721
  Serious: Yes (Death)
  Sender: FDA-Public Use
  Company Number: GB-ROCHE-1423080

PATIENT
  Sex: Female
  Weight: 55 kg

DRUGS (1)
  1. RITUXIMAB [Suspect]
     Active Substance: RITUXIMAB
     Indication: RHEUMATOID ARTHRITIS
     Dosage: DATE OF LAST DOSE PRIOR TO SAE: 18/MAR/2011
     Route: 042
     Dates: start: 20070615

REACTIONS (3)
  - Acute kidney injury [Fatal]
  - Pneumonia [Fatal]
  - Septic shock [Fatal]
